FAERS Safety Report 8740421 (Version 2)
Quarter: 2013Q4

REPORT INFORMATION
  Report Type: Spontaneous
  Country: US (occurrence: US)
  Receive Date: 20120823
  Receipt Date: 20131101
  Transmission Date: 20140711
  Serious: No
  Sender: FDA-Public Use
  Company Number: US-009507513-1208USA006080

PATIENT
  Sex: Female

DRUGS (4)
  1. EMEND [Suspect]
  2. COMPAZINE [Concomitant]
  3. CARBOPLATIN [Concomitant]
  4. GEMZAR [Concomitant]

REACTIONS (2)
  - Drug ineffective [Unknown]
  - Nausea [Unknown]
